FAERS Safety Report 15826878 (Version 3)
Quarter: 2019Q1

REPORT INFORMATION
  Report Type: Report from Study
  Country: JP (occurrence: JP)
  Receive Date: 20190115
  Receipt Date: 20190305
  Transmission Date: 20190417
  Serious: Yes (Hospitalization)
  Sender: FDA-Public Use
  Company Number: JP-EISAI MEDICAL RESEARCH-EC-2019-050504

PATIENT
  Age: 39 Year
  Sex: Male

DRUGS (11)
  1. TEGRETOL [Suspect]
     Active Substance: CARBAMAZEPINE
     Route: 048
     Dates: start: 20170608
  2. RIVOTRIL [Concomitant]
     Active Substance: CLONAZEPAM
  3. SELENICA-R [Concomitant]
     Active Substance: VALPROATE SODIUM
  4. TEGRETOL [Suspect]
     Active Substance: CARBAMAZEPINE
     Indication: PARTIAL SEIZURES
     Route: 048
     Dates: end: 20170607
  5. REBAMIPIDE [Concomitant]
     Active Substance: REBAMIPIDE
  6. RISPERDAL [Concomitant]
     Active Substance: RISPERIDONE
  7. PANTOSIN [Concomitant]
     Active Substance: PANTETHINE
  8. ROHYPNOL [Concomitant]
     Active Substance: FLUNITRAZEPAM
  9. FYCOMPA [Suspect]
     Active Substance: PERAMPANEL
     Indication: PARTIAL SEIZURES
     Route: 048
     Dates: start: 20170427, end: 20180415
  10. HIRNAMIN [Concomitant]
     Active Substance: LEVOMEPROMAZINE
  11. ZYPREXA [Concomitant]
     Active Substance: OLANZAPINE

REACTIONS (1)
  - Delusion [Recovered/Resolved]

NARRATIVE: CASE EVENT DATE: 201801
